FAERS Safety Report 5139205-3 (Version None)
Quarter: 2006Q4

REPORT INFORMATION
  Report Type: 
  Country: None (occurrence: None)
  Receive Date: 20061030
  Receipt Date: 20060712
  Transmission Date: 20070319
  Serious: Yes (Other)
  Sender: FDA-Public Use
  Company Number: US-GLAXOSMITHKLINE-A0612028A

PATIENT
  Age: 74 Year
  Sex: Female

DRUGS (6)
  1. ADVAIR HFA [Suspect]
     Indication: EMPHYSEMA
     Dosage: 1PUFF TWICE PER DAY
     Route: 055
  2. NEXIUM [Concomitant]
  3. FLONASE [Concomitant]
  4. DUONEB [Concomitant]
  5. ALLERGY MEDICATION [Concomitant]
  6. EYE DROPS(UNSPECIFIED) [Concomitant]

REACTIONS (2)
  - CATARACT [None]
  - WHEEZING [None]
